FAERS Safety Report 9399367 (Version 1)
Quarter: 2013Q3

REPORT INFORMATION
  Report Type: Spontaneous
  Country: US (occurrence: US)
  Receive Date: 20130715
  Receipt Date: 20130715
  Transmission Date: 20140515
  Serious: No
  Sender: FDA-Public Use
  Company Number: US-PFIZER INC-2013204170

PATIENT
  Age: 64 Year
  Sex: Female
  Weight: 45.35 kg

DRUGS (4)
  1. LYRICA [Suspect]
     Indication: NEURALGIA
     Dosage: 150 MG (2 CAPSULES OF 75MG), 3X/DAY
     Route: 048
     Dates: end: 20130707
  2. LYRICA [Suspect]
     Dosage: UNK
     Route: 048
     Dates: start: 20130708
  3. VITAMIN B12 [Concomitant]
     Indication: PERNICIOUS ANAEMIA
     Dosage: 2 MG, WEEKLY
  4. SYNTHROID [Concomitant]
     Indication: HYPOTHYROIDISM
     Dosage: 75 MG, 1X/DAY

REACTIONS (1)
  - Pain [Unknown]
